FAERS Safety Report 9846374 (Version 1)
Quarter: 2014Q1

REPORT INFORMATION
  Report Type: Spontaneous
  Country: US (occurrence: None)
  Receive Date: 20140122
  Receipt Date: 20140122
  Transmission Date: 20141002
  Serious: Yes (Other)
  Sender: FDA-Public Use
  Company Number: INT_00360_2014

PATIENT
  Age: 60 Year
  Sex: Female

DRUGS (2)
  1. PACLITAXEL [Suspect]
     Indication: OVARIAN CANCER
     Dosage: 175 MG/M**2/ 3 H INFUSION
  2. PACLITAXEL [Suspect]
     Indication: OVARIAN CANCER
     Dosage: 175 MG/M**2/ 3 H INFUSION

REACTIONS (4)
  - Hypersensitivity [None]
  - Urticaria [None]
  - Respiratory distress [None]
  - Oxygen saturation decreased [None]
